FAERS Safety Report 16324391 (Version 1)
Quarter: 2020Q3

REPORT INFORMATION
  Report Type: Spontaneous
  Country: ES (occurrence: ES)
  Receive Date: 20190517
  Receipt Date: 20190517
  Transmission Date: 20201105
  Serious: Yes (Hospitalization)
  Sender: FDA-Public Use
  Company Number: ES-AUROBINDO-AUR-APL-2019-027145

PATIENT

DRUGS (18)
  1. TIOTROPIUM [Suspect]
     Active Substance: TIOTROPIUM
     Dosage: 18 MICROGRAM,24 HOUR
     Route: 065
     Dates: start: 201403
  2. LEBRIKIZUMAB. [Suspect]
     Active Substance: LEBRIKIZUMAB
     Indication: ASTHMA
     Dosage: UNK
     Route: 065
  3. LEBRIKIZUMAB. [Suspect]
     Active Substance: LEBRIKIZUMAB
     Indication: ASTHMA
     Dosage: UNK
     Route: 065
     Dates: start: 201503, end: 201608
  4. FLUTICASONE;FORMOTEROL [Suspect]
     Active Substance: FLUTICASONE\FORMOTEROL
     Indication: ASTHMA
     Dosage: UNK
     Route: 065
  5. FLUTICASONE;FORMOTEROL [Suspect]
     Active Substance: FLUTICASONE\FORMOTEROL
     Indication: ASTHMA
     Dosage: UNK,TWO PUFFS (CONTAINING FORMOTEROL/FLUTICASONE PROPIONATE 320 MIGROG/9 MICROG) TWICE DAILY
     Route: 055
     Dates: start: 201608
  6. PREDNISONE. [Suspect]
     Active Substance: PREDNISONE
     Dosage: 5?10 MG EVERY 24 HOURS
     Route: 048
     Dates: start: 201503
  7. PREDNISONE. [Suspect]
     Active Substance: PREDNISONE
     Dosage: 10?30 MG EVERY 24 HOURS
     Route: 048
     Dates: start: 201711
  8. MONTELUKAST [Suspect]
     Active Substance: MONTELUKAST SODIUM
     Indication: ASTHMA
     Dosage: UNK
     Route: 065
  9. TIOTROPIUM [Suspect]
     Active Substance: TIOTROPIUM
     Indication: ASTHMA
     Dosage: UNK
     Route: 065
  10. FLUTICASONE;SALMETEROL [Suspect]
     Active Substance: FLUTICASONE PROPIONATE\SALMETEROL XINAFOATE
     Indication: ASTHMA
     Dosage: UNK
     Route: 065
  11. FLUTICASONE;SALMETEROL [Suspect]
     Active Substance: FLUTICASONE PROPIONATE\SALMETEROL XINAFOATE
     Indication: ASTHMA
     Dosage: TWO PUFFS (CONTAINING SALMETEROL/FLUTICASONE PROPIONATE 22/250) TWICE DAILY
     Route: 055
     Dates: start: 201403
  12. METRONIDAZOLE. [Concomitant]
     Active Substance: METRONIDAZOLE
     Indication: BLASTOCYSTIS INFECTION
     Dosage: UNK
     Route: 065
  13. PREDNISONE. [Suspect]
     Active Substance: PREDNISONE
     Dosage: 5 MILLIGRAM,24 HOUR
     Route: 048
     Dates: start: 201403
  14. PREDNISONE. [Suspect]
     Active Substance: PREDNISONE
     Dosage: 5?30 MG EVERY 24 HOURS
     Route: 048
     Dates: start: 201608
  15. PREDNISONE. [Suspect]
     Active Substance: PREDNISONE
     Indication: ASTHMA
     Dosage: UNK
     Route: 065
  16. PREDNISONE. [Suspect]
     Active Substance: PREDNISONE
     Indication: ASTHMA
     Dosage: 5?10 MG DAILY
     Route: 048
  17. MONTELUKAST [Suspect]
     Active Substance: MONTELUKAST SODIUM
     Indication: ASTHMA
     Dosage: 10 MILLIGRAM,24 HOUR
     Route: 065
     Dates: start: 201403
  18. OMALIZUMAB. [Suspect]
     Active Substance: OMALIZUMAB
     Indication: ASTHMA
     Dosage: 300 MILLIGRAM,1 MONTH
     Route: 065

REACTIONS (1)
  - Treatment failure [Unknown]
